FAERS Safety Report 13740591 (Version 1)
Quarter: 2017Q3

REPORT INFORMATION
  Report Type: Spontaneous
  Country: US (occurrence: US)
  Receive Date: 20170711
  Receipt Date: 20170711
  Transmission Date: 20171127
  Serious: No
  Sender: FDA-Public Use
  Company Number: US-ORCHID HEALTHCARE-2023188

PATIENT
  Age: 80 Year
  Sex: Male

DRUGS (5)
  1. TERBINAFINE HYDROCHLORIDE. [Suspect]
     Active Substance: TERBINAFINE HYDROCHLORIDE
     Indication: FUNGAL INFECTION
     Route: 048
     Dates: start: 20170314, end: 20170317
  2. BLOOD PRESSURE PILLS [Concomitant]
     Active Substance: UNSPECIFIED INGREDIENT
     Route: 065
  3. CHOLESTEROL PILL [Concomitant]
     Active Substance: UNSPECIFIED INGREDIENT
     Route: 065
  4. MEMORY LOSS PATCH [Concomitant]
     Route: 065
  5. NAMENDA [Suspect]
     Active Substance: MEMANTINE HYDROCHLORIDE
     Route: 065

REACTIONS (7)
  - Dysgeusia [Recovering/Resolving]
  - Pulmonary congestion [Recovering/Resolving]
  - Pharyngeal oedema [Recovered/Resolved]
  - Epistaxis [Recovered/Resolved]
  - Hypoaesthesia oral [None]
  - Dyspnoea [Recovered/Resolved]
  - Hypoaesthesia oral [Recovering/Resolving]

NARRATIVE: CASE EVENT DATE: 20170316
